FAERS Safety Report 21823444 (Version 1)
Quarter: 2023Q1

REPORT INFORMATION
  Report Type: Spontaneous
  Country: US (occurrence: US)
  Receive Date: 20230105
  Receipt Date: 20230105
  Transmission Date: 20230417
  Serious: Yes (Hospitalization, Other)
  Sender: FDA-Public Use
  Company Number: US-MYLANLABS-2022M1141024

PATIENT
  Age: 42 Year
  Sex: Female

DRUGS (1)
  1. CISPLATIN [Suspect]
     Active Substance: CISPLATIN
     Indication: Cervix carcinoma stage II
     Dosage: UNK, CYCLE (RECEIVED 3 CYCLES OF CISPLATIN CHEMOTHERAPY)
     Route: 065

REACTIONS (17)
  - Toxicity to various agents [Recovered/Resolved]
  - Rectal stenosis [Recovered/Resolved]
  - Large intestinal stenosis [Recovered/Resolved]
  - Rectal haemorrhage [Unknown]
  - Skin exfoliation [Recovered/Resolved]
  - Rectal ulcer [Unknown]
  - Back pain [Unknown]
  - Hydronephrosis [Unknown]
  - Vulvovaginal pain [Unknown]
  - Sensation of foreign body [Unknown]
  - Osteoradionecrosis [Unknown]
  - Fractured sacrum [Unknown]
  - Pelvic fracture [Unknown]
  - Renal impairment [Unknown]
  - Neutropenia [Recovered/Resolved]
  - Osteomyelitis [Unknown]
  - Diarrhoea [Recovered/Resolved]
